FAERS Safety Report 11632720 (Version 1)
Quarter: 2015Q4

REPORT INFORMATION
  Report Type: Spontaneous
  Country: FR (occurrence: FR)
  Receive Date: 20151015
  Receipt Date: 20151015
  Transmission Date: 20160304
  Serious: Yes (Hospitalization)
  Sender: FDA-Public Use
  Company Number: FR-JNJFOC-20151005617

PATIENT
  Age: 95 Year
  Sex: Female

DRUGS (11)
  1. SEROPLEX [Suspect]
     Active Substance: ESCITALOPRAM OXALATE
     Indication: CEREBROVASCULAR ACCIDENT
     Route: 048
     Dates: start: 201501, end: 20150915
  2. XANAX [Suspect]
     Active Substance: ALPRAZOLAM
     Indication: ANXIETY
     Dosage: DOSE:  0.25 MG, ? TABLET 3 TIMES PER DAY
     Route: 065
  3. IMOVANE [Suspect]
     Active Substance: ZOPICLONE
     Indication: INSOMNIA
     Dosage: DOSE: ? TABLET OF 7.5 MG PER DAY
     Route: 048
     Dates: start: 20150916
  4. MONURIL [Concomitant]
     Active Substance: FOSFOMYCIN SODIUM
     Route: 065
  5. XANAX [Suspect]
     Active Substance: ALPRAZOLAM
     Indication: ANXIETY
     Route: 065
     Dates: start: 20150916
  6. IMOVANE [Suspect]
     Active Substance: ZOPICLONE
     Indication: INSOMNIA
     Route: 048
  7. RISPERDAL [Suspect]
     Active Substance: RISPERIDONE
     Indication: PRODUCT USED FOR UNKNOWN INDICATION
     Route: 048
     Dates: start: 201509, end: 20150915
  8. SEROPLEX [Suspect]
     Active Substance: ESCITALOPRAM OXALATE
     Indication: CEREBROVASCULAR ACCIDENT
     Route: 048
     Dates: start: 201501
  9. CARDENSIEL [Concomitant]
     Active Substance: BISOPROLOL FUMARATE
     Route: 065
  10. HYPERIUM [Concomitant]
     Active Substance: RILMENIDINE PHOSPHATE
     Route: 065
  11. LERCAN [Concomitant]
     Active Substance: LERCANIDIPINE
     Route: 065

REACTIONS (3)
  - Abnormal behaviour [Recovered/Resolved]
  - Mania [Recovered/Resolved]
  - Hallucination [Recovered/Resolved]

NARRATIVE: CASE EVENT DATE: 201509
